FAERS Safety Report 5362460-1 (Version None)
Quarter: 2007Q2

REPORT INFORMATION
  Report Type: 
  Country: None (occurrence: None)
  Receive Date: 20070530
  Receipt Date: 20070322
  Transmission Date: 20071010
  Serious: No
  Sender: FDA-Public Use
  Company Number: 2007PV032205

PATIENT
  Age: 37 Year
  Sex: Male
  Weight: 102.5129 kg

DRUGS (9)
  1. BYETTA [Suspect]
     Indication: DIABETES MELLITUS NON-INSULIN-DEPENDENT
     Dosage: 10 MCG; 5 MCG : BID; SC
     Route: 058
     Dates: start: 20060424, end: 20060530
  2. BYETTA [Suspect]
     Indication: DIABETES MELLITUS NON-INSULIN-DEPENDENT
     Dosage: 10 MCG; 5 MCG : BID; SC
     Route: 058
     Dates: start: 20060531, end: 20070306
  3. ACTOS [Concomitant]
  4. LISINOPRIL [Concomitant]
  5. HYDROCHLOROTHIAZIDE [Concomitant]
  6. METOPROLOL TARTRATE [Concomitant]
  7. ZOCOR [Concomitant]
  8. ASPIRIN [Concomitant]
  9. LANSOPRAZOLE [Concomitant]

REACTIONS (2)
  - MUSCLE TWITCHING [None]
  - TREMOR [None]
